FAERS Safety Report 24202240 (Version 2)
Quarter: 2024Q3

REPORT INFORMATION
  Report Type: Report from Study
  Country: US (occurrence: US)
  Receive Date: 20240812
  Receipt Date: 20240818
  Transmission Date: 20241016
  Serious: Yes (Other)
  Sender: ABBVIE
  Company Number: US-ABBVIE-5875449

PATIENT
  Sex: Male
  Weight: 65.77 kg

DRUGS (15)
  1. CREON [Suspect]
     Active Substance: PANCRELIPASE AMYLASE\PANCRELIPASE LIPASE\PANCRELIPASE PROTEASE
     Indication: Pancreatic failure
     Route: 048
  2. CREON [Suspect]
     Active Substance: PANCRELIPASE AMYLASE\PANCRELIPASE LIPASE\PANCRELIPASE PROTEASE
     Indication: Pancreatic failure
     Dosage: 2 CAPS EACH MEAL, STRENGTH AND UNIT -36000 UNIT
     Route: 048
     Dates: start: 202101
  3. FOSTEUM PLUS [Concomitant]
     Indication: Osteoporosis
  4. ROSUVASTATIN [Concomitant]
     Active Substance: ROSUVASTATIN\ROSUVASTATIN CALCIUM
     Indication: Blood cholesterol
     Dosage: 10 MILLIGRAM
  5. Gastroflux [Concomitant]
     Indication: Flatulence
  6. LOSARTAN [Concomitant]
     Active Substance: LOSARTAN\LOSARTAN POTASSIUM
     Indication: Hypertension
  7. PROLIA [Concomitant]
     Active Substance: DENOSUMAB
     Indication: Osteoporosis
  8. LEVOMEFOLIC ACID\METHYLCOBALAMIN\TURMERIC [Concomitant]
     Active Substance: LEVOMEFOLIC ACID\METHYLCOBALAMIN\TURMERIC
     Indication: Product used for unknown indication
  9. Diagliptina met [Concomitant]
     Indication: Diabetes mellitus
     Dosage: 2.5 MILLIGRAM
  10. TINACTOL [Concomitant]
     Indication: Diabetic neuropathy
  11. CANDESARTAN [Concomitant]
     Active Substance: CANDESARTAN
     Indication: Hypertension
     Dosage: 32 MILLIGRAM
  12. AMLODIPINE [Concomitant]
     Active Substance: AMLODIPINE BESYLATE
     Indication: Hypertension
     Dosage: 5 MILLIGRAM
  13. URSODIOL [Concomitant]
     Active Substance: URSODIOL
     Indication: Lithiasis
     Dosage: 300 MILLIGRAM
  14. ALIGN [Concomitant]
     Active Substance: BIFIDOBACTERIUM LONGUM SUBSP. INFANTIS
     Indication: Probiotic therapy
  15. ASPIRIN [Concomitant]
     Active Substance: ASPIRIN
     Indication: Anticoagulant therapy
     Dosage: ONGOING

REACTIONS (4)
  - Hepatic cancer [Recovering/Resolving]
  - Hepatic cancer [Recovered/Resolved]
  - Hepatic neoplasm [Recovering/Resolving]
  - Hepatic neoplasm [Recovered/Resolved]

NARRATIVE: CASE EVENT DATE: 20220101
